FAERS Safety Report 13265927 (Version 1)
Quarter: 2017Q1

REPORT INFORMATION
  Report Type: Spontaneous
  Country: US (occurrence: US)
  Receive Date: 20170223
  Receipt Date: 20170223
  Transmission Date: 20170428
  Serious: Yes (Other)
  Sender: FDA-Public Use
  Company Number: US-LANTHEUS-LMI-2016-00101

PATIENT
  Age: 38 Year

DRUGS (1)
  1. DEFINITY [Suspect]
     Active Substance: PERFLUTREN
     Indication: PRODUCT USED FOR UNKNOWN INDICATION
     Dosage: UNKNOWN DOSE OF DEFINITY (DILUTION DETAILS NOT PROVIDED)
     Route: 042

REACTIONS (3)
  - Respiratory arrest [Recovered/Resolved]
  - Electrocardiogram QT prolonged [Recovered/Resolved]
  - Cardiac arrest [Recovered/Resolved]

NARRATIVE: CASE EVENT DATE: 20160216
